FAERS Safety Report 8523877-7 (Version None)
Quarter: 2012Q3

REPORT INFORMATION
  Report Type: 
  Country: None (occurrence: None)
  Receive Date: 20120720
  Receipt Date: 20120717
  Transmission Date: 20120928
  Serious: Yes (Death)
  Sender: FDA-Public Use
  Company Number: JP-SANOFI-AVENTIS-2012SA043413

PATIENT
  Age: 63 Year
  Sex: Male

DRUGS (4)
  1. FLUOROURACIL [Suspect]
     Indication: RECTAL CANCER
     Dosage: REGIMEN:1
     Route: 040
     Dates: start: 20120530, end: 20120530
  2. FLUOROURACIL [Suspect]
     Dosage: REGIMEN: 2
     Route: 041
     Dates: start: 20120530, end: 20120531
  3. OXALIPLATIN [Suspect]
     Indication: RECTAL CANCER
     Route: 041
     Dates: start: 20120530, end: 20120530
  4. LEUCOVORIN CALCIUM [Concomitant]
     Dates: start: 20120530, end: 20120530

REACTIONS (2)
  - CARDIO-RESPIRATORY ARREST [None]
  - ARRHYTHMIA [None]
